FAERS Safety Report 19173770 (Version 1)
Quarter: 2021Q2

REPORT INFORMATION
  Report Type: Spontaneous
  Country: IN (occurrence: IN)
  Receive Date: 20210423
  Receipt Date: 20210423
  Transmission Date: 20210717
  Serious: Yes (Life-Threatening, Hospitalization, Other)
  Sender: FDA-Public Use
  Company Number: IN-ALLERGAN-2116095US

PATIENT
  Sex: Male

DRUGS (1)
  1. MORPHINE SULFATE UNK [Suspect]
     Active Substance: MORPHINE SULFATE
     Indication: DRUG DIVERSION

REACTIONS (2)
  - Foreign body in gastrointestinal tract [Unknown]
  - Toxicity to various agents [Recovering/Resolving]
